FAERS Safety Report 7499179-7 (Version None)
Quarter: 2011Q2

REPORT INFORMATION
  Report Type: 
  Country: None (occurrence: None)
  Receive Date: 20110524
  Receipt Date: 20110511
  Transmission Date: 20111010
  Serious: Yes (Hospitalization, Other)
  Sender: FDA-Public Use
  Company Number: US-ELI_LILLY_AND_COMPANY-US201002001096

PATIENT
  Sex: Female

DRUGS (2)
  1. FORTEO [Suspect]
     Dosage: 20 UG, DAILY (1/D)
     Route: 065
     Dates: end: 20110301
  2. FORTEO [Suspect]
     Indication: OSTEOPOROSIS
     Dosage: 20 UG, DAILY (1/D)
     Route: 065
     Dates: start: 20090701

REACTIONS (10)
  - DYSPNOEA [None]
  - ALTERED STATE OF CONSCIOUSNESS [None]
  - HAEMORRHAGE [None]
  - PROCEDURAL COMPLICATION [None]
  - FLUID RETENTION [None]
  - ARTHROPATHY [None]
  - RENAL FAILURE [None]
  - GAIT DISTURBANCE [None]
  - AMNESIA [None]
  - MUSCLE SPASMS [None]
